FAERS Safety Report 9362307 (Version 1)
Quarter: 2013Q2

REPORT INFORMATION
  Report Type: Spontaneous
  Country: US (occurrence: US)
  Receive Date: 20130622
  Receipt Date: 20130622
  Transmission Date: 20140414
  Serious: No
  Sender: FDA-Public Use
  Company Number: US-US-EMD SERONO, INC.-238063J08USA

PATIENT
  Sex: Male

DRUGS (2)
  1. REBIF [Suspect]
     Indication: MULTIPLE SCLEROSIS
     Route: 058
     Dates: start: 200805
  2. ADVIL [Concomitant]
     Indication: PREMEDICATION
     Route: 065

REACTIONS (6)
  - Nephrolithiasis [Unknown]
  - Hemiparesis [Unknown]
  - Feeling cold [Unknown]
  - Eye disorder [Unknown]
  - Rash [Unknown]
  - Fatigue [Unknown]
